FAERS Safety Report 25962883 (Version 1)
Quarter: 2025Q4

REPORT INFORMATION
  Report Type: Spontaneous
  Country: US (occurrence: US)
  Receive Date: 20251027
  Receipt Date: 20251027
  Transmission Date: 20260117
  Serious: No
  Sender: MYLAN
  Company Number: US-MYLANLABS-2025M1089381

PATIENT
  Sex: Male
  Weight: 98.88 kg

DRUGS (5)
  1. GABAPENTIN [Suspect]
     Active Substance: GABAPENTIN
     Indication: Multiple sclerosis
     Dosage: UNK
  2. DULOXETINE [Concomitant]
     Active Substance: DULOXETINE
     Dosage: 40 MILLIGRAM
  3. SILODOSIN [Concomitant]
     Active Substance: SILODOSIN
     Dosage: 8 MILLIGRAM
  4. FINASTERIDE [Concomitant]
     Active Substance: FINASTERIDE
     Dosage: 5 MILLIGRAM
  5. OCREVUS [Concomitant]
     Active Substance: OCRELIZUMAB
     Dosage: UNK

REACTIONS (1)
  - Drug ineffective [Unknown]
